FAERS Safety Report 5468443-5 (Version None)
Quarter: 2007Q3

REPORT INFORMATION
  Report Type: 
  Country: None (occurrence: None)
  Receive Date: 20070820
  Receipt Date: 20070621
  Transmission Date: 20080115
  Serious: No
  Sender: FDA-Public Use
  Company Number: WAES 0706USA04137

PATIENT
  Age: 56 Year
  Sex: Female

DRUGS (5)
  1. JANUVIA [Suspect]
     Indication: DIABETES MELLITUS
     Dosage: 100 MG/ DAILY/ PO
     Route: 048
     Dates: start: 20070620
  2. HYZAAR [Concomitant]
  3. PREMARIN [Concomitant]
  4. TOPROL-XL [Concomitant]
  5. ZOCOR [Concomitant]

REACTIONS (3)
  - NASAL CONGESTION [None]
  - PAIN [None]
  - PHARYNGOLARYNGEAL PAIN [None]
